FAERS Safety Report 9840845 (Version 1)
Quarter: 2013Q4

REPORT INFORMATION
  Report Type: Spontaneous
  Country: US (occurrence: None)
  Receive Date: 20131211
  Receipt Date: 20131211
  Transmission Date: 20140711
  Serious: Yes (Other)
  Sender: FDA-Public Use
  Company Number: ALL1-2012-02143

PATIENT
  Age: 51 Year
  Sex: Male

DRUGS (1)
  1. LIALDA [Suspect]
     Indication: COLITIS ULCERATIVE
     Route: 048

REACTIONS (4)
  - Pancreatitis [None]
  - Hepatitis [None]
  - Diarrhoea [None]
  - Pyrexia [None]
